FAERS Safety Report 6659905-3 (Version None)
Quarter: 2010Q1

REPORT INFORMATION
  Report Type: 
  Country: None (occurrence: None)
  Receive Date: 20100330
  Receipt Date: 20100330
  Transmission Date: 20100710
  Serious: Yes (Hospitalization)
  Sender: FDA-Public Use
  Company Number: None

PATIENT
  Age: 59 Year
  Sex: Female
  Weight: 61.2356 kg

DRUGS (2)
  1. FOSAMAX PLUS D [Suspect]
     Indication: OSTEOPENIA
     Dosage: 1 PILL ONCE/WEEK PO
     Route: 048
     Dates: start: 20070323, end: 20080613
  2. ALENDRONATE 40 MG TEVA [Suspect]
     Indication: OSTEOPENIA
     Dosage: 1 PILL ONCE/WEEK PO
     Route: 048
     Dates: start: 20080620, end: 20080815

REACTIONS (8)
  - BACK PAIN [None]
  - FEMUR FRACTURE [None]
  - IMPAIRED HEALING [None]
  - INJURY [None]
  - INTERVERTEBRAL DISC DISORDER [None]
  - LOWER LIMB FRACTURE [None]
  - MOBILITY DECREASED [None]
  - PAIN IN EXTREMITY [None]
